FAERS Safety Report 13242777 (Version 1)
Quarter: 2017Q1

REPORT INFORMATION
  Report Type: Spontaneous
  Country: US (occurrence: US)
  Receive Date: 20170217
  Receipt Date: 20170217
  Transmission Date: 20170428
  Serious: No
  Sender: FDA-Public Use
  Company Number: US-NOVOPROD-525228

PATIENT
  Age: 70 Year
  Sex: Male
  Weight: 113.38 kg

DRUGS (2)
  1. VICTOZA [Suspect]
     Active Substance: LIRAGLUTIDE
     Indication: TYPE 2 DIABETES MELLITUS
     Dosage: INITIAL DOSE WAS SMALL
     Route: 058
     Dates: start: 201605, end: 201605
  2. VICTOZA [Suspect]
     Active Substance: LIRAGLUTIDE
     Dosage: DOSE MOVED UP
     Route: 058
     Dates: start: 201605, end: 201605

REACTIONS (2)
  - Flatulence [Recovered/Resolved]
  - Diarrhoea [Recovered/Resolved]

NARRATIVE: CASE EVENT DATE: 201605
